FAERS Safety Report 5404956-X (Version None)
Quarter: 2007Q3

REPORT INFORMATION
  Report Type: 
  Country: None (occurrence: None)
  Receive Date: 20070803
  Receipt Date: 20070625
  Transmission Date: 20080115
  Serious: Yes (Hospitalization, Other)
  Sender: FDA-Public Use
  Company Number: PE-ASTRAZENECA-2006UW23471

PATIENT
  Age: 17980 Day
  Sex: Male

DRUGS (4)
  1. SEROQUEL [Suspect]
     Indication: BIPOLAR DISORDER
     Route: 048
     Dates: start: 20061027, end: 20061030
  2. SEROQUEL [Suspect]
     Route: 048
     Dates: start: 20061031
  3. STUDY PROCEDURE [Suspect]
     Indication: BIPOLAR DISORDER
  4. ENALAPRIL MALEATE [Concomitant]

REACTIONS (2)
  - HEADACHE [None]
  - HYPERTENSION [None]
